FAERS Safety Report 8516702-1 (Version None)
Quarter: 2012Q3

REPORT INFORMATION
  Report Type: 
  Country: None (occurrence: None)
  Receive Date: 20120718
  Receipt Date: 20120709
  Transmission Date: 20120928
  Serious: Yes (Other)
  Sender: FDA-Public Use
  Company Number: IN-B.I. PHARMACEUTICALS,INC./RIDGEFIELD-2012-CS-00983IG

PATIENT
  Age: 37 Year
  Sex: Female

DRUGS (3)
  1. TRAJENTA [Suspect]
     Indication: DIABETES MELLITUS
     Route: 048
     Dates: end: 20120709
  2. TELMA 8.0 [Concomitant]
  3. VINGOSE 0.3 [Concomitant]

REACTIONS (3)
  - HEADACHE [None]
  - BLOOD GLUCOSE FLUCTUATION [None]
  - NAUSEA [None]
